FAERS Safety Report 22024416 (Version 2)
Quarter: 2023Q1

REPORT INFORMATION
  Report Type: Spontaneous
  Country: US (occurrence: US)
  Receive Date: 20230223
  Receipt Date: 20230228
  Transmission Date: 20230417
  Serious: No
  Sender: FDA-Public Use
  Company Number: US-GILEAD-2023-0617446

PATIENT
  Age: 76 Year
  Sex: Female
  Weight: 69.841 kg

DRUGS (4)
  1. AMBRISENTAN [Suspect]
     Active Substance: AMBRISENTAN
     Indication: Product used for unknown indication
     Dosage: UNKNOWN
     Route: 065
     Dates: start: 20230202
  2. TYVASO [Suspect]
     Active Substance: TREPROSTINIL
     Indication: Pulmonary arterial hypertension
     Dosage: 18 ?G, QID, INHALATION
     Route: 055
     Dates: start: 20230131
  3. XARELTO [Concomitant]
     Active Substance: RIVAROXABAN
  4. SILDENAFIL CITRATE [Concomitant]
     Active Substance: SILDENAFIL CITRATE

REACTIONS (9)
  - Weight increased [Unknown]
  - Peripheral swelling [Unknown]
  - Decreased appetite [Unknown]
  - Dyspnoea [Unknown]
  - Chest discomfort [Unknown]
  - Hypotension [Unknown]
  - Insomnia [Unknown]
  - Oxygen saturation decreased [Unknown]
  - Fear of death [Unknown]
